FAERS Safety Report 20835663 (Version 6)
Quarter: 2023Q1

REPORT INFORMATION
  Report Type: Other
  Country: US (occurrence: None)
  Receive Date: 20220516
  Receipt Date: 20230215
  Transmission Date: 20230418
  Serious: Yes (Other)
  Sender: FDA-Public Use
  Company Number: US-ROCHE-2999464

PATIENT
  Age: 86 Year
  Sex: Female

DRUGS (8)
  1. BONIVA [Suspect]
     Active Substance: IBANDRONATE SODIUM
     Indication: Product used for unknown indication
     Dosage: PREVIOUSLY TOOK BONIVA INJECTION
     Route: 065
  2. CELLCEPT [Suspect]
     Active Substance: MYCOPHENOLATE MOFETIL
     Indication: Inclusion body myositis
     Dosage: TAKE 1 TABLET BY MOUTH TWICE DAILY
     Route: 048
     Dates: start: 20210908
  3. CELLCEPT [Suspect]
     Active Substance: MYCOPHENOLATE MOFETIL
     Route: 048
     Dates: end: 201611
  4. CELLCEPT [Suspect]
     Active Substance: MYCOPHENOLATE MOFETIL
     Route: 048
     Dates: start: 201701
  5. OMEPRAZOLE [Concomitant]
     Active Substance: OMEPRAZOLE
     Route: 048
     Dates: start: 20211025
  6. PROLIA [Concomitant]
     Active Substance: DENOSUMAB
     Indication: Osteoporosis
     Dosage: 60 MG/ML
  7. SPIRONOLACTONE [Concomitant]
     Active Substance: SPIRONOLACTONE
     Route: 048
     Dates: start: 20220228
  8. PREDNISONE [Concomitant]
     Active Substance: PREDNISONE

REACTIONS (11)
  - Neoplasm malignant [Unknown]
  - Squamous cell carcinoma [Unknown]
  - Patella fracture [Unknown]
  - Fibula fracture [Unknown]
  - Joint injury [Unknown]
  - Fall [Unknown]
  - Blood pressure increased [Unknown]
  - Arthritis [Unknown]
  - Osteoarthritis [Unknown]
  - Gait disturbance [Unknown]
  - Off label use [Unknown]
